FAERS Safety Report 4586326-X (Version None)
Quarter: 2005Q1

REPORT INFORMATION
  Report Type: 
  Country: None (occurrence: None)
  Receive Date: 20050217
  Receipt Date: 20050104
  Transmission Date: 20050727
  Serious: Yes (Death, Hospitalization)
  Sender: FDA-Public Use
  Company Number: US-MERCK-0501USA00152

PATIENT
  Age: 70 Year
  Sex: Female

DRUGS (7)
  1. VIOXX [Suspect]
     Route: 048
     Dates: start: 20030101, end: 20040901
  2. VIOXX [Suspect]
     Route: 065
     Dates: start: 20030204, end: 20030521
  3. VIOXX [Suspect]
     Route: 065
     Dates: start: 20040828, end: 20040924
  4. ZOLOFT [Concomitant]
     Route: 065
  5. XANAX [Concomitant]
     Route: 065
  6. QUININE [Concomitant]
     Route: 065
  7. HUMULIN 70/30 [Concomitant]
     Route: 065

REACTIONS (25)
  - ASTHENIA [None]
  - ATRIOVENTRICULAR BLOCK FIRST DEGREE [None]
  - BLOOD ALBUMIN DECREASED [None]
  - BLOOD CHLORIDE DECREASED [None]
  - BLOOD OSMOLARITY DECREASED [None]
  - BLOOD PRESSURE INCREASED [None]
  - BRAIN NATRIURETIC PEPTIDE INCREASED [None]
  - CARDIAC ARREST [None]
  - CARDIAC FAILURE CONGESTIVE [None]
  - COMA [None]
  - COMPUTERISED TOMOGRAM ABNORMAL [None]
  - CYANOSIS [None]
  - DIABETES MELLITUS [None]
  - ELECTROCARDIOGRAM T WAVE ABNORMAL [None]
  - FLUID OVERLOAD [None]
  - FLUID RETENTION [None]
  - HAEMATOCRIT DECREASED [None]
  - HAEMOGLOBIN DECREASED [None]
  - HYPERVOLAEMIA [None]
  - HYPONATRAEMIA [None]
  - MYOCARDIAL INFARCTION [None]
  - NAUSEA [None]
  - RALES [None]
  - RESPIRATORY FAILURE [None]
  - VOMITING [None]
